FAERS Safety Report 23194763 (Version 2)
Quarter: 2025Q1

REPORT INFORMATION
  Report Type: Spontaneous
  Country: US (occurrence: US)
  Receive Date: 20231117
  Receipt Date: 20250220
  Transmission Date: 20250409
  Serious: No
  Sender: GLAXOSMITHKLINE
  Company Number: US-GSKCCFUS-Case-01853880_AE-103542

PATIENT
  Sex: Female

DRUGS (3)
  1. ZEJULA [Suspect]
     Active Substance: NIRAPARIB
     Indication: Ovarian epithelial cancer stage III
     Dates: start: 202207
  2. ZEJULA [Suspect]
     Active Substance: NIRAPARIB
  3. ZEJULA [Suspect]
     Active Substance: NIRAPARIB
     Indication: Ovarian epithelial cancer stage III
     Dates: start: 202309

REACTIONS (7)
  - Platelet count decreased [Unknown]
  - Dyspnoea [Unknown]
  - Palpitations [Unknown]
  - Cough [Unknown]
  - Restlessness [Unknown]
  - Blood pressure systolic increased [Unknown]
  - Heart rate increased [Unknown]
